FAERS Safety Report 25595442 (Version 1)
Quarter: 2025Q3

REPORT INFORMATION
  Report Type: Spontaneous
  Country: US (occurrence: US)
  Receive Date: 20250723
  Receipt Date: 20250723
  Transmission Date: 20251021
  Serious: Yes (Hospitalization)
  Sender: AMNEAL
  Company Number: US-AMNEAL PHARMACEUTICALS-2025-AMRX-01787

PATIENT
  Sex: Female
  Weight: 90.703 kg

DRUGS (3)
  1. NADOLOL [Suspect]
     Active Substance: NADOLOL
     Indication: Arrhythmia
     Route: 048
  2. NADOLOL [Suspect]
     Active Substance: NADOLOL
     Dosage: 20 MG TABLET, 1 /DAY
     Route: 048
     Dates: start: 20250430
  3. NADOLOL [Suspect]
     Active Substance: NADOLOL
     Dosage: 20 MG TABLET, 2 /DAY
     Route: 048

REACTIONS (2)
  - Heart rate decreased [Unknown]
  - Symptom recurrence [Not Recovered/Not Resolved]
